FAERS Safety Report 4610607-4 (Version None)
Quarter: 2005Q1

REPORT INFORMATION
  Report Type: 
  Country: None (occurrence: None)
  Receive Date: 20050316
  Receipt Date: 20050311
  Transmission Date: 20050727
  Serious: Yes (Life-Threatening, Hospitalization, Disabling)
  Sender: FDA-Public Use
  Company Number: US-MERCK-0503USA01879

PATIENT
  Age: 69 Year
  Sex: Female

DRUGS (10)
  1. VIOXX [Suspect]
     Indication: ARTHRITIS
     Route: 048
     Dates: start: 20010101, end: 20040901
  2. GLUCOPHAGE [Concomitant]
     Route: 065
  3. BUSPAR [Concomitant]
     Route: 065
  4. AMARYL [Concomitant]
     Route: 065
  5. ZOLOFT [Concomitant]
     Route: 065
  6. CADUET [Concomitant]
     Route: 065
  7. PLAVIX [Concomitant]
     Route: 065
  8. ULTRAM [Concomitant]
     Route: 065
  9. PRINIVIL [Concomitant]
     Route: 065
  10. PREMPRO [Concomitant]
     Route: 065

REACTIONS (4)
  - ANEURYSM [None]
  - BLOOD POTASSIUM DECREASED [None]
  - CEREBROVASCULAR ACCIDENT [None]
  - MYOCARDIAL INFARCTION [None]
